FAERS Safety Report 7466259-1 (Version None)
Quarter: 2011Q2

REPORT INFORMATION
  Report Type: 
  Country: None (occurrence: None)
  Receive Date: 20110505
  Receipt Date: 20110505
  Transmission Date: 20111010
  Serious: No
  Sender: FDA-Public Use
  Company Number: None

PATIENT
  Age: 67 Year
  Sex: Female

DRUGS (6)
  1. ARMODAFINIL [Concomitant]
  2. AMPYRA [Suspect]
     Indication: MULTIPLE SCLEROSIS
     Dosage: AMPYRA 10MG EVERY 12 HOURS ORAL
     Route: 048
     Dates: start: 20110103
  3. OMEPRAZOLE [Concomitant]
  4. LOSARTAN [Concomitant]
  5. AVONEX [Concomitant]
  6. VICODIN [Concomitant]

REACTIONS (1)
  - BALANCE DISORDER [None]
